FAERS Safety Report 4512931-2 (Version None)
Quarter: 2004Q4

REPORT INFORMATION
  Report Type: 
  Country: None (occurrence: None)
  Receive Date: 20041119
  Receipt Date: 20041119
  Transmission Date: 20050328
  Serious: Yes (Other)
  Sender: FDA-Public Use
  Company Number: None

PATIENT
  Age: 40 Year
  Sex: Female
  Weight: 61.2356 kg

DRUGS (2)
  1. CELEBREX [Suspect]
     Dosage: ONE A DAY ORAL
     Route: 048
     Dates: start: 20000501, end: 20031231
  2. IMITREX [Concomitant]

REACTIONS (2)
  - BLOOD URINE PRESENT [None]
  - KIDNEY INFECTION [None]
